FAERS Safety Report 8386131-2 (Version None)
Quarter: 2012Q2

REPORT INFORMATION
  Report Type: 
  Country: None (occurrence: None)
  Receive Date: 20120525
  Receipt Date: 20120514
  Transmission Date: 20120825
  Serious: Yes (Other)
  Sender: FDA-Public Use
  Company Number: US-SANOFI-AVENTIS-2010SA049526

PATIENT
  Age: 68 Year
  Sex: Female

DRUGS (13)
  1. OXYGEN [Concomitant]
     Indication: CHRONIC OBSTRUCTIVE PULMONARY DISEASE
  2. LANTUS [Suspect]
     Dosage: 45- 50 UNITS NIGHTLY
     Route: 058
  3. APIDRA [Suspect]
     Dosage: 8 - 14 UNITS TID
     Route: 058
     Dates: start: 20050101
  4. AMARYL [Suspect]
     Route: 048
  5. SOLOSTAR [Suspect]
     Dates: start: 20050101
  6. SINGULAIR [Concomitant]
     Indication: ASTHMA
  7. LANTUS [Suspect]
     Dosage: DOSE:42 UNIT(S)
     Route: 058
  8. OPTICLICK [Suspect]
  9. OXYGEN [Concomitant]
     Indication: ASTHMA
  10. ADVAIR DISKUS 100/50 [Concomitant]
     Indication: ASTHMA
  11. LANTUS [Suspect]
     Dosage: DOSE:10 UNIT(S)
     Route: 058
     Dates: start: 20050901
  12. APIDRA [Suspect]
     Dosage: 14-16 UNITS TID
     Route: 058
  13. SOLOSTAR [Suspect]
     Dates: start: 20050101

REACTIONS (7)
  - WEIGHT INCREASED [None]
  - VISUAL IMPAIRMENT [None]
  - BLOOD GLUCOSE INCREASED [None]
  - OSTEOARTHRITIS [None]
  - HYPOGLYCAEMIA [None]
  - SOMNOLENCE [None]
  - MACULAR OEDEMA [None]
